FAERS Safety Report 4542779-4 (Version None)
Quarter: 2004Q4

REPORT INFORMATION
  Report Type: 
  Country: None (occurrence: None)
  Receive Date: 20041231
  Receipt Date: 20041220
  Transmission Date: 20050328
  Serious: Yes (Hospitalization)
  Sender: FDA-Public Use
  Company Number: US-SOLVAY-00204004441

PATIENT
  Age: 15282 Day
  Sex: Female
  Weight: 74 kg

DRUGS (2)
  1. ESTERIFIED ESTROGEN [Suspect]
     Indication: MENOPAUSAL SYMPTOMS
     Dosage: DAILY DOSE: 1.25 MILLIGRAM(S)
     Route: 048
     Dates: start: 20041205, end: 20041211
  2. ESTERIFIED ESTROGEN [Suspect]
     Dosage: DAILY DOSE: 1.25 MILLIGRAM(S)
     Route: 048
     Dates: start: 20041213

REACTIONS (1)
  - DIVERTICULITIS [None]
